FAERS Safety Report 17747155 (Version 2)
Quarter: 2020Q2

REPORT INFORMATION
  Report Type: Spontaneous
  Country: FR (occurrence: FR)
  Receive Date: 20200505
  Receipt Date: 20200619
  Transmission Date: 20200714
  Serious: Yes (Hospitalization, Disabling)
  Sender: FDA-Public Use
  Company Number: FR-MYLANLABS-2020M1043585

PATIENT
  Age: 34 Year
  Sex: Female

DRUGS (3)
  1. LOXAPAC                            /00401802/ [Suspect]
     Active Substance: LOXAPINE SUCCINATE
     Indication: MENTAL DISORDER
     Dosage: UNK
     Route: 048
     Dates: start: 20200310
  2. PROMETHAZINE HYDROCHLORIDE AND DEXTROMETHORPHAN HYDROBROMIDE [Suspect]
     Active Substance: DEXTROMETHORPHAN HYDROBROMIDE\PROMETHAZINE HYDROCHLORIDE
     Indication: MENTAL DISORDER
     Dosage: 75 MILLIGRAM, QD
     Route: 048
     Dates: start: 20200313
  3. CLOZAPINE. [Suspect]
     Active Substance: CLOZAPINE
     Indication: PRODUCT USED FOR UNKNOWN INDICATION
     Dosage: 125 MILLIGRAM, QD
     Route: 048
     Dates: start: 20200313

REACTIONS (2)
  - Intestinal obstruction [Recovered/Resolved with Sequelae]
  - Colectomy [Recovered/Resolved with Sequelae]

NARRATIVE: CASE EVENT DATE: 202003
